FAERS Safety Report 11069759 (Version 1)
Quarter: 2015Q2

REPORT INFORMATION
  Report Type: Spontaneous
  Country: US (occurrence: US)
  Receive Date: 20150427
  Receipt Date: 20150427
  Transmission Date: 20150821
  Serious: Yes (Hospitalization, Other)
  Sender: FDA-Public Use
  Company Number: US-AMGEN-205941

PATIENT
  Age: 7 Year
  Sex: Male

DRUGS (6)
  1. ZIDOVUDINE. [Concomitant]
     Active Substance: ZIDOVUDINE
     Indication: HIV INFECTION
     Dosage: 180 MG/M2, EVERY 6 HOURS
     Route: 048
     Dates: start: 19930901, end: 19940415
  2. ACYCLOVIR                          /00587301/ [Concomitant]
     Active Substance: ACYCLOVIR
     Indication: PROPHYLAXIS
     Dosage: 200 MG, FOUR TIMES A DAY
  3. SULFAMETHOXAZOLE AND TRIMETHOPRIM [Concomitant]
     Active Substance: SULFAMETHOXAZOLE\TRIMETHOPRIM
     Dosage: 300 MG, THREE TIMES A WEEK
  4. DIDANOSINE. [Concomitant]
     Active Substance: DIDANOSINE
     Dosage: 120 MG/M2, EVERY 8 HOURS
     Dates: start: 199404
  5. NEUPOGEN [Suspect]
     Active Substance: FILGRASTIM
     Indication: NEUTROPENIA
     Dosage: 5 MUG/KG, QD
     Route: 058
     Dates: start: 19930901
  6. SULFAMETHOXAZOLE AND TRIMETHOPRIM [Concomitant]
     Active Substance: SULFAMETHOXAZOLE\TRIMETHOPRIM
     Indication: PROPHYLAXIS
     Dosage: 60 MG, TWICE DAILY

REACTIONS (2)
  - Disseminated intravascular coagulation [Recovered/Resolved]
  - Coagulation time prolonged [Recovered/Resolved]

NARRATIVE: CASE EVENT DATE: 19931115
